FAERS Safety Report 24455223 (Version 2)
Quarter: 2024Q4

REPORT INFORMATION
  Report Type: Report from Study
  Country: US (occurrence: US)
  Receive Date: 20241017
  Receipt Date: 20241018
  Transmission Date: 20250115
  Serious: No
  Sender: ROCHE
  Company Number: US-ROCHE-3484667

PATIENT

DRUGS (17)
  1. RITUXIMAB [Suspect]
     Active Substance: RITUXIMAB
     Indication: Peripheral arterial occlusive disease
     Route: 065
  2. PREDNISONE [Suspect]
     Active Substance: PREDNISONE
     Indication: Peripheral arterial occlusive disease
     Route: 065
  3. METHYLPREDNISOLONE [Suspect]
     Active Substance: METHYLPREDNISOLONE
     Indication: Peripheral arterial occlusive disease
     Route: 065
  4. DEXAMETHASONE [Suspect]
     Active Substance: DEXAMETHASONE
     Indication: Peripheral arterial occlusive disease
     Route: 065
  5. HYDROCORTISONE [Suspect]
     Active Substance: HYDROCORTISONE
     Indication: Peripheral arterial occlusive disease
     Route: 065
  6. CYCLOSPORINE [Suspect]
     Active Substance: CYCLOSPORINE
     Indication: Peripheral arterial occlusive disease
     Route: 065
  7. TACROLIMUS [Suspect]
     Active Substance: TACROLIMUS
     Indication: Peripheral arterial occlusive disease
     Route: 065
  8. AZATHIOPRINE [Suspect]
     Active Substance: AZATHIOPRINE
     Indication: Peripheral arterial occlusive disease
     Route: 065
  9. MYCOPHENOLIC ACID [Suspect]
     Active Substance: MYCOPHENOLIC ACID
     Indication: Peripheral arterial occlusive disease
     Route: 065
  10. METHOTREXATE [Suspect]
     Active Substance: METHOTREXATE
     Indication: Peripheral arterial occlusive disease
     Route: 065
  11. HYDROXYUREA [Suspect]
     Active Substance: HYDROXYUREA
     Indication: Peripheral arterial occlusive disease
     Route: 065
  12. SIROLIMUS [Suspect]
     Active Substance: SIROLIMUS
     Indication: Peripheral arterial occlusive disease
     Route: 065
  13. PACLITAXEL [Suspect]
     Active Substance: PACLITAXEL
     Indication: Peripheral arterial occlusive disease
     Route: 065
  14. IMATINIB [Suspect]
     Active Substance: IMATINIB
     Indication: Peripheral arterial occlusive disease
     Route: 065
  15. HYDROXYCHLOROQUINE [Suspect]
     Active Substance: HYDROXYCHLOROQUINE
     Indication: Peripheral arterial occlusive disease
     Route: 065
  16. LEFLUNOMIDE [Suspect]
     Active Substance: LEFLUNOMIDE
     Indication: Peripheral arterial occlusive disease
     Route: 065
  17. ETANERCEPT [Suspect]
     Active Substance: ETANERCEPT
     Indication: Peripheral arterial occlusive disease
     Route: 065

REACTIONS (1)
  - Postoperative wound infection [Unknown]
